FAERS Safety Report 10079162 (Version 1)
Quarter: 2014Q2

REPORT INFORMATION
  Report Type: Spontaneous
  Country: US (occurrence: None)
  Receive Date: 20140414
  Receipt Date: 20140414
  Transmission Date: 20141212
  Serious: No
  Sender: FDA-Public Use
  Company Number: None

PATIENT
  Age: 6 Year
  Sex: Female
  Weight: 21.6 kg

DRUGS (2)
  1. GAMUNEX-C [Suspect]
     Indication: HUMAN HERPESVIRUS 6 INFECTION
     Route: 042
     Dates: start: 20140411, end: 20140411
  2. FUROSEMIDE [Concomitant]

REACTIONS (3)
  - Pruritus generalised [None]
  - Flushing [None]
  - Infusion related reaction [None]
